FAERS Safety Report 13390782 (Version 1)
Quarter: 2017Q1

REPORT INFORMATION
  Report Type: Spontaneous
  Country: IT (occurrence: IT)
  Receive Date: 20170331
  Receipt Date: 20170331
  Transmission Date: 20170429
  Serious: Yes (Hospitalization)
  Sender: FDA-Public Use
  Company Number: IT-TEVA-755065ACC

PATIENT
  Age: 69 Year
  Sex: Male

DRUGS (3)
  1. OXALIPLATINO [Suspect]
     Active Substance: OXALIPLATIN
     Indication: RECTAL CANCER
     Route: 042
     Dates: start: 20151209, end: 20151221
  2. XELODA [Suspect]
     Active Substance: CAPECITABINE
     Indication: RECTAL CANCER
     Route: 048
     Dates: start: 20151209, end: 20151221
  3. TAREG [Concomitant]
     Active Substance: VALSARTAN

REACTIONS (5)
  - Thrombocytopenia [Unknown]
  - Diarrhoea [Unknown]
  - Leukopenia [Unknown]
  - Neutropenia [Unknown]
  - Retching [Unknown]

NARRATIVE: CASE EVENT DATE: 20151221
